FAERS Safety Report 19497174 (Version 1)
Quarter: 2021Q3

REPORT INFORMATION
  Report Type: Other
  Country: ES (occurrence: ES)
  Receive Date: 20210706
  Receipt Date: 20210706
  Transmission Date: 20211014
  Serious: Yes (Other)
  Sender: FDA-Public Use
  Company Number: ES-ROCHE-2859207

PATIENT

DRUGS (6)
  1. MYCOPHENOLATE MOFETIL. [Suspect]
     Active Substance: MYCOPHENOLATE MOFETIL
     Indication: IMMUNE TOLERANCE INDUCTION
     Dosage: 5?10 MG/KG/BID X 3 WEEKS
     Route: 065
  2. CYCLOPHOSPHAMIDE. [Concomitant]
     Active Substance: CYCLOPHOSPHAMIDE
     Indication: PROPHYLAXIS AGAINST GRAFT VERSUS HOST DISEASE
     Dosage: 50 MG/KG/DAY ON DAYS +3 AND +4
     Route: 065
  3. RITUXIMAB. [Suspect]
     Active Substance: RITUXIMAB
     Indication: IMMUNE TOLERANCE INDUCTION
     Dosage: 375 MG/M2, WEEKLY X 3 DOSES
     Route: 065
  4. IMMUNOGLOBULIN I.V [Suspect]
     Active Substance: HUMAN IMMUNOGLOBULIN G
     Indication: IMMUNE TOLERANCE INDUCTION
     Route: 065
  5. MYCOPHENOLATE MOFETIL. [Suspect]
     Active Substance: MYCOPHENOLATE MOFETIL
     Indication: PROPHYLAXIS AGAINST GRAFT VERSUS HOST DISEASE
     Route: 065
  6. BUSULFAN. [Concomitant]
     Active Substance: BUSULFAN
     Indication: BONE MARROW CONDITIONING REGIMEN
     Dosage: 3.2 MG/KG/DAY EITHER ONE OR TWO DAYS ON DAYS 3 AND 2

REACTIONS (6)
  - Off label use [Unknown]
  - Bacteraemia [Unknown]
  - Guillain-Barre syndrome [Recovered/Resolved]
  - Drug effective for unapproved indication [Unknown]
  - Venoocclusive liver disease [Recovered/Resolved]
  - Demyelinating polyneuropathy [Recovered/Resolved]
